FAERS Safety Report 20001608 (Version 2)
Quarter: 2022Q1

REPORT INFORMATION
  Report Type: Report from Study
  Country: JP (occurrence: JP)
  Receive Date: 20211027
  Receipt Date: 20220126
  Transmission Date: 20220423
  Serious: Yes (Other)
  Sender: FDA-Public Use
  Company Number: JP-RECORDATI RARE DISEASES-JP-R13005-20-00142

PATIENT
  Age: 0 Year
  Sex: Female
  Weight: 2.174 kg

DRUGS (5)
  1. NEOPROFEN [Suspect]
     Active Substance: IBUPROFEN LYSINE
     Indication: Patent ductus arteriosus
     Dosage: 22 MILLIGRAM, QD
     Route: 042
     Dates: start: 20190524, end: 20190524
  2. NEOPROFEN [Suspect]
     Active Substance: IBUPROFEN LYSINE
     Dosage: 22 MILLIGRAM, QD
     Route: 042
     Dates: start: 20190525, end: 20190525
  3. NEOPROFEN [Suspect]
     Active Substance: IBUPROFEN LYSINE
     Dosage: 11 MILLIGRAM, QD
     Route: 042
     Dates: start: 20190529, end: 20190529
  4. SOLDEM 3A [Concomitant]
     Active Substance: CARBOHYDRATES\POTASSIUM CHLORIDE\SODIUM CHLORIDE\SODIUM LACTATE
     Indication: Oliguria
     Dosage: UNK UNK, UNK
     Route: 042
     Dates: start: 20190524, end: 20190526
  5. ISOTONIC SODIUM CHLORIDE SOLUTION [Concomitant]
     Active Substance: SODIUM CHLORIDE
     Indication: Hyponatraemia
     Dosage: UNK UNK, UNK
     Route: 042
     Dates: start: 20190529, end: 20190530

REACTIONS (4)
  - Hyponatraemia [Recovered/Resolved]
  - Hyperkalaemia [Recovered/Resolved]
  - Oliguria [Recovering/Resolving]
  - Infantile apnoea [Recovering/Resolving]

NARRATIVE: CASE EVENT DATE: 20190524
